FAERS Safety Report 6708959-4 (Version None)
Quarter: 2010Q2

REPORT INFORMATION
  Report Type: 
  Country: None (occurrence: None)
  Receive Date: 20100504
  Receipt Date: 20100429
  Transmission Date: 20101027
  Serious: Yes (Death)
  Sender: FDA-Public Use
  Company Number: TN-JNJFOC-20100407382

PATIENT
  Age: 26 Year
  Sex: Female

DRUGS (2)
  1. SPORANOX [Suspect]
     Indication: DERMATOPHYTOSIS
     Route: 065
  2. GRISEOFULVIN [Suspect]
     Indication: DERMATOPHYTOSIS
     Route: 065

REACTIONS (3)
  - DRUG INEFFECTIVE [None]
  - FUNGAL INFECTION [None]
  - PHARYNGEAL ABSCESS [None]
